FAERS Safety Report 18147334 (Version 1)
Quarter: 2020Q3

REPORT INFORMATION
  Report Type: Report from Study
  Country: GB (occurrence: GB)
  Receive Date: 20200813
  Receipt Date: 20200813
  Transmission Date: 20201103
  Serious: Yes (Death, Hospitalization)
  Sender: FDA-Public Use
  Company Number: GB-JNJFOC-20200808379

PATIENT
  Age: 8 Decade
  Sex: Male
  Weight: 106 kg

DRUGS (19)
  1. MORPHINE SULPHATE [Concomitant]
     Active Substance: MORPHINE SULFATE
     Dates: start: 20200331, end: 20200404
  2. CO?AMOXICLAV                       /00756801/ [Concomitant]
     Active Substance: AMOXICILLIN\CLAVULANIC ACID
     Dates: start: 20200331, end: 20200404
  3. MIDAZOLAM. [Concomitant]
     Active Substance: MIDAZOLAM
     Dates: start: 20200331, end: 20200404
  4. SALBUTAMOL [Concomitant]
     Active Substance: ALBUTEROL
     Dates: start: 20200331, end: 20200404
  5. STELARA [Suspect]
     Active Substance: USTEKINUMAB
     Indication: PSORIASIS
     Route: 058
     Dates: start: 20170331, end: 20200313
  6. FELODIPINE. [Concomitant]
     Active Substance: FELODIPINE
     Dates: start: 20070601, end: 20200404
  7. PHOSPHATE SANDOZ [Concomitant]
     Active Substance: SODIUM PHOSPHATE, MONOBASIC, ANHYDROUS
     Dates: start: 20200331, end: 20200404
  8. IPRATROPIUM [Concomitant]
     Active Substance: IPRATROPIUM
     Dates: start: 20200331, end: 20200404
  9. DIGOXIN. [Concomitant]
     Active Substance: DIGOXIN
     Dates: start: 20200331, end: 20200404
  10. ATENOLOL. [Concomitant]
     Active Substance: ATENOLOL
     Dates: start: 20070601, end: 20200404
  11. ZOSYN [Concomitant]
     Active Substance: PIPERACILLIN SODIUM\TAZOBACTAM SODIUM
     Dates: start: 20200331, end: 20200404
  12. BISOPROLOL [Concomitant]
     Active Substance: BISOPROLOL
     Dates: start: 20200331, end: 20200404
  13. ASPIRIN                            /00002701/ [Concomitant]
     Active Substance: ASPIRIN
     Dates: start: 20070601, end: 20200404
  14. OMEPRAZOLE. [Concomitant]
     Active Substance: OMEPRAZOLE
     Dates: start: 20070601, end: 20200404
  15. CYCLIZINE [Concomitant]
     Active Substance: CYCLIZINE
     Dates: start: 20200331, end: 20200404
  16. TIOTROPIUM [Concomitant]
     Active Substance: TIOTROPIUM
     Dates: start: 20200331, end: 20200404
  17. AMLODIPINE [Concomitant]
     Active Substance: AMLODIPINE BESYLATE
     Dates: start: 20200331, end: 20200404
  18. DALTEPARIN [Concomitant]
     Active Substance: DALTEPARIN
     Dates: start: 20200331, end: 20200404
  19. PARACETAMOL [Concomitant]
     Active Substance: ACETAMINOPHEN
     Dates: start: 20200331, end: 20200404

REACTIONS (2)
  - Sepsis [Fatal]
  - COVID-19 [Fatal]

NARRATIVE: CASE EVENT DATE: 202003
